FAERS Safety Report 5573784-7 (Version None)
Quarter: 2007Q4

REPORT INFORMATION
  Report Type: 
  Country: None (occurrence: None)
  Receive Date: 20071226
  Receipt Date: 20071219
  Transmission Date: 20080405
  Serious: Yes (Death)
  Sender: FDA-Public Use
  Company Number: JP-ASTRAZENECA-2007AP06544

PATIENT
  Age: 79 Year
  Sex: Male
  Weight: 76 kg

DRUGS (7)
  1. CASODEX [Suspect]
     Indication: PROSTATE CANCER
     Route: 048
     Dates: start: 20030101, end: 20071009
  2. TENORMIN [Suspect]
     Indication: HYPERTENSION
     Route: 048
     Dates: start: 19970101, end: 20071009
  3. OLMETEC [Suspect]
     Indication: HYPERTENSION
     Route: 048
     Dates: start: 20070501, end: 20071009
  4. SUNRYTHM [Suspect]
     Indication: ATRIAL FIBRILLATION
     Route: 048
     Dates: start: 20030101, end: 20071009
  5. GASTER D [Suspect]
     Indication: GASTRIC ULCER
     Route: 048
     Dates: end: 20071009
  6. DEPAS [Suspect]
     Indication: INSOMNIA
     Route: 048
     Dates: end: 20071009
  7. WARFARIN SODIUM [Concomitant]
     Indication: ATRIAL FIBRILLATION
     Route: 048
     Dates: start: 20030101, end: 20071009

REACTIONS (1)
  - INTERSTITIAL LUNG DISEASE [None]
